FAERS Safety Report 13271637 (Version 1)
Quarter: 2017Q1

REPORT INFORMATION
  Report Type: Spontaneous
  Country: CN (occurrence: CN)
  Receive Date: 20170227
  Receipt Date: 20170227
  Transmission Date: 20170428
  Serious: Yes (Death, Other)
  Sender: FDA-Public Use
  Company Number: CN-CIPLA LTD.-2017CN02193

PATIENT

DRUGS (7)
  1. GEMCITABINE [Suspect]
     Active Substance: GEMCITABINE\GEMCITABINE HYDROCHLORIDE
     Indication: NASOPHARYNGEAL CANCER
     Dosage: 1000 MG/M2, ON DAYS 1 AND 8, THREE CYCLES, SECOND LINE CHEMOTHERAPY
     Route: 065
     Dates: start: 2013, end: 201312
  2. BEVACIZUMAB [Suspect]
     Active Substance: BEVACIZUMAB
     Indication: NASOPHARYNGEAL CANCER
     Dosage: 7.5 MG/KG, ON DAY 1, FOR A TOTAL OF 6 CYCLES
     Route: 065
     Dates: start: 2013, end: 201312
  3. CISPLATIN. [Suspect]
     Active Substance: CISPLATIN
     Indication: NASOPHARYNGEAL CANCER
     Dosage: 15 MG/M2, ON DAYS 1-5, FOR SIX CYCLES
     Route: 065
  4. FLUOROURACIL. [Suspect]
     Active Substance: FLUOROURACIL
     Indication: NASOPHARYNGEAL CANCER
     Dosage: 500 MG/M2, ON DAYS 1-5, FOR SIX CYCLES
     Route: 065
  5. PACLITAXEL LIPOSOME [Suspect]
     Active Substance: PACLITAXEL
     Indication: NASOPHARYNGEAL CANCER
     Dosage: 175 MG/M2, ON DAY 1, FOR SIX CYCLES
     Route: 065
  6. NEDAPLATIN [Suspect]
     Active Substance: NEDAPLATIN
     Indication: NASOPHARYNGEAL CANCER
     Dosage: 90 MG/M2, ON DAY 1, THREE CYCLES, SECOND LINE CHEMOTHERAPY
     Route: 065
     Dates: start: 2013, end: 201312
  7. GIMERACIL AND OTERACIL POTASSIUM [Suspect]
     Active Substance: GIMERACIL\OTERACIL POTASSIUM
     Indication: METASTASES TO LIVER
     Dosage: 60 MG, BID, ON DAYS 1-14, THIRD LINE CHEMOTHERAPY
     Route: 065
     Dates: start: 2014

REACTIONS (3)
  - Disease progression [Unknown]
  - Hepatic function abnormal [Fatal]
  - Bone marrow failure [Fatal]
